FAERS Safety Report 12707181 (Version 1)
Quarter: 2016Q3

REPORT INFORMATION
  Report Type: Spontaneous
  Country: US (occurrence: US)
  Receive Date: 20160901
  Receipt Date: 20160901
  Transmission Date: 20161109
  Serious: No
  Sender: FDA-Public Use
  Company Number: US-BAUSCH-BL-2016-013445

PATIENT
  Age: 62 Year
  Sex: Female

DRUGS (1)
  1. ADDYI [Suspect]
     Active Substance: FLIBANSERIN
     Indication: LIBIDO DISORDER
     Route: 048
     Dates: start: 201511, end: 201605

REACTIONS (7)
  - Feeling abnormal [Recovering/Resolving]
  - Incorrect dose administered [Unknown]
  - Drug dose omission [Unknown]
  - Mood swings [Not Recovered/Not Resolved]
  - Headache [Unknown]
  - Off label use [Unknown]
  - Anger [Not Recovered/Not Resolved]

NARRATIVE: CASE EVENT DATE: 201605
